FAERS Safety Report 23681368 (Version 2)
Quarter: 2024Q2

REPORT INFORMATION
  Report Type: Spontaneous
  Country: US (occurrence: None)
  Receive Date: 20240328
  Receipt Date: 20240415
  Transmission Date: 20240716
  Serious: No
  Sender: FDA-Public Use
  Company Number: 2024A002331

PATIENT
  Sex: Male

DRUGS (2)
  1. BREZTRI [Suspect]
     Active Substance: BUDESONIDE\FORMOTEROL\GLYCOPYRROLATE
     Dosage: 160.0UG UNKNOWN
     Route: 055
  2. BREZTRI [Suspect]
     Active Substance: BUDESONIDE\FORMOTEROL\GLYCOPYRROLATE
     Dosage: 160.0UG UNKNOWN
     Route: 055
     Dates: start: 20240101

REACTIONS (7)
  - Chronic obstructive pulmonary disease [Unknown]
  - Device malfunction [Unknown]
  - Incorrect dose administered [Unknown]
  - Wrong technique in device usage process [Unknown]
  - Product dose omission issue [Unknown]
  - Incorrect dose administered by device [Unknown]
  - Drug ineffective [Unknown]
